FAERS Safety Report 7028611-8 (Version None)
Quarter: 2010Q3

REPORT INFORMATION
  Report Type: 
  Country: None (occurrence: None)
  Receive Date: 20100826
  Receipt Date: 20100811
  Transmission Date: 20110219
  Serious: Yes (Other)
  Sender: FDA-Public Use
  Company Number: 20100618CINRY1521

PATIENT
  Age: 49 Year
  Sex: Female
  Weight: 148.7798 kg

DRUGS (22)
  1. CINRYZE [Suspect]
     Indication: HEREDITARY ANGIOEDEMA
     Dosage: (1000 UNIT, 2 IN 1 WK); (1000 UNIT, 1 IN 3 D), INTRAVENOUS; (1000 , 3 IN 1 WK), INTRAVENOUS
     Route: 042
     Dates: start: 20100422, end: 20100501
  2. CINRYZE [Suspect]
     Indication: PROPHYLAXIS
     Dosage: (1000 UNIT, 2 IN 1 WK); (1000 UNIT, 1 IN 3 D), INTRAVENOUS; (1000 , 3 IN 1 WK), INTRAVENOUS
     Route: 042
     Dates: start: 20100422, end: 20100501
  3. CINRYZE [Suspect]
     Indication: HEREDITARY ANGIOEDEMA
     Dosage: (1000 UNIT, 2 IN 1 WK); (1000 UNIT, 1 IN 3 D), INTRAVENOUS; (1000 , 3 IN 1 WK), INTRAVENOUS
     Route: 042
     Dates: start: 20100501, end: 20100501
  4. CINRYZE [Suspect]
     Indication: PROPHYLAXIS
     Dosage: (1000 UNIT, 2 IN 1 WK); (1000 UNIT, 1 IN 3 D), INTRAVENOUS; (1000 , 3 IN 1 WK), INTRAVENOUS
     Route: 042
     Dates: start: 20100501, end: 20100501
  5. CINRYZE [Suspect]
     Indication: HEREDITARY ANGIOEDEMA
     Dosage: (1000 UNIT, 2 IN 1 WK); (1000 UNIT, 1 IN 3 D), INTRAVENOUS; (1000 , 3 IN 1 WK), INTRAVENOUS
     Route: 042
     Dates: start: 20100520
  6. CINRYZE [Suspect]
     Indication: PROPHYLAXIS
     Dosage: (1000 UNIT, 2 IN 1 WK); (1000 UNIT, 1 IN 3 D), INTRAVENOUS; (1000 , 3 IN 1 WK), INTRAVENOUS
     Route: 042
     Dates: start: 20100520
  7. CELEBREX [Concomitant]
  8. CYMBALTA [Concomitant]
  9. ATENOLOL [Concomitant]
  10. AMLODIPINE [Concomitant]
  11. METFORMIN HCL [Concomitant]
  12. BUMETANIDE [Concomitant]
  13. POTASSIUM (POTASSIUM) [Concomitant]
  14. ZOLOFT [Concomitant]
  15. NEXIUM [Concomitant]
  16. ALPRAZOLAM [Concomitant]
  17. CETIRIZINE HCL [Concomitant]
  18. DICYCLOMINE [Concomitant]
  19. HYDROCODONE BITARTRATE [Concomitant]
  20. CALCIUM (CALCIUM) (TABLETS) [Concomitant]
  21. CITRUCEL (METHYLCELLULOSE) [Concomitant]
  22. DANAZOL [Concomitant]

REACTIONS (8)
  - ALANINE AMINOTRANSFERASE INCREASED [None]
  - ASPARTATE AMINOTRANSFERASE INCREASED [None]
  - BLOOD ALKALINE PHOSPHATASE INCREASED [None]
  - CARDIAC FLUTTER [None]
  - CONDITION AGGRAVATED [None]
  - HEADACHE [None]
  - HEREDITARY ANGIOEDEMA [None]
  - PROTEIN TOTAL INCREASED [None]
